FAERS Safety Report 26176272 (Version 1)
Quarter: 2025Q4

REPORT INFORMATION
  Report Type: Spontaneous
  Country: US (occurrence: None)
  Receive Date: 20251218
  Receipt Date: 20251218
  Transmission Date: 20260118
  Serious: Yes (Hospitalization)
  Sender: FDA-CTU
  Company Number: None

PATIENT
  Age: 74 Year
  Sex: Female

DRUGS (8)
  1. LENALIDOMIDE [Suspect]
     Active Substance: LENALIDOMIDE
     Indication: Plasma cell myeloma
     Dosage: 15 MG DAILY ORAL
     Route: 048
     Dates: start: 20251108, end: 20251201
  2. TRAMADOL/APAP 37.5MG/325MG TABS [Concomitant]
  3. DARZALEX 100MG/5ML INJ, 1 VIAL [Concomitant]
  4. ACYCLOVIR 400MG TABLETS [Concomitant]
  5. LOSARTAN POTASSIUM [Concomitant]
     Active Substance: LOSARTAN POTASSIUM
  6. VITAMIN B12 2000MCG ER TABLETS [Concomitant]
  7. MONTELUKAST SODIUM [Concomitant]
     Active Substance: MONTELUKAST SODIUM
  8. VITAMIN B12 2000MCG ER TABLETS [Concomitant]

REACTIONS (3)
  - Dehydration [None]
  - Rash [None]
  - Pulmonary oedema [None]

NARRATIVE: CASE EVENT DATE: 20251201
